FAERS Safety Report 9350586 (Version 1)
Quarter: 2013Q2

REPORT INFORMATION
  Report Type: Spontaneous
  Country: JP (occurrence: JP)
  Receive Date: 20130617
  Receipt Date: 20130617
  Transmission Date: 20140414
  Serious: Yes (Other)
  Sender: FDA-Public Use
  Company Number: JP-JNJFOC-20130516185

PATIENT
  Age: 68 Year
  Sex: Female

DRUGS (3)
  1. RISPERDAL [Suspect]
     Indication: BIPOLAR DISORDER
     Route: 048
     Dates: start: 20130420
  2. DOGMATYL [Concomitant]
     Indication: BIPOLAR DISORDER
     Route: 048
     Dates: start: 201204
  3. TAKEPRON [Concomitant]
     Indication: BIPOLAR DISORDER
     Route: 048
     Dates: start: 201204

REACTIONS (4)
  - Gastrointestinal haemorrhage [Unknown]
  - Drooling [Not Recovered/Not Resolved]
  - Anaemia [Recovered/Resolved]
  - Depression [Unknown]
